FAERS Safety Report 20305298 (Version 1)
Quarter: 2022Q1

REPORT INFORMATION
  Report Type: Spontaneous
  Country: US (occurrence: None)
  Receive Date: 20220106
  Receipt Date: 20220106
  Transmission Date: 20220423
  Serious: Yes (Other)
  Sender: FDA-Public Use
  Company Number: None

PATIENT
  Age: 89 Year
  Sex: Female
  Weight: 67.5 kg

DRUGS (11)
  1. ABIRATERONE [Suspect]
     Active Substance: ABIRATERONE
     Indication: Prostate cancer
     Dosage: FREQUENCY : DAILY;?
     Route: 048
     Dates: start: 20210914, end: 20211218
  2. VITAMIN B12 [Concomitant]
     Active Substance: CYANOCOBALAMIN
  3. VITAMIN D3 [Concomitant]
     Active Substance: CHOLECALCIFEROL
  4. IPRATROPIUM BROMIDE [Concomitant]
     Active Substance: IPRATROPIUM BROMIDE
  5. NITRO-TIME [Concomitant]
     Active Substance: NITROGLYCERIN
  6. BICALUTAMIDE [Concomitant]
     Active Substance: BICALUTAMIDE
  7. HYDROCHLOROTHIAZIDE [Concomitant]
     Active Substance: HYDROCHLOROTHIAZIDE
  8. NITROGLYCERIN [Concomitant]
     Active Substance: NITROGLYCERIN
  9. TAMSULOSIN [Concomitant]
     Active Substance: TAMSULOSIN
  10. ATORVASTATIN [Concomitant]
     Active Substance: ATORVASTATIN
  11. FISH OIL [Concomitant]
     Active Substance: FISH OIL

REACTIONS (1)
  - Death [None]

NARRATIVE: CASE EVENT DATE: 20211218
